FAERS Safety Report 22634079 (Version 1)
Quarter: 2023Q2

REPORT INFORMATION
  Report Type: Spontaneous
  Country: US (occurrence: US)
  Receive Date: 20230623
  Receipt Date: 20230623
  Transmission Date: 20230721
  Serious: No
  Sender: FDA-Public Use
  Company Number: US-GSK-US2023083812

PATIENT
  Sex: Female

DRUGS (1)
  1. BENLYSTA [Suspect]
     Active Substance: BELIMUMAB
     Indication: Nasal polyps
     Dosage: UNK

REACTIONS (2)
  - Circumstance or information capable of leading to medication error [Unknown]
  - Product use in unapproved indication [Unknown]
